FAERS Safety Report 7547078-4 (Version None)
Quarter: 2011Q2

REPORT INFORMATION
  Report Type: 
  Country: None (occurrence: None)
  Receive Date: 20110614
  Receipt Date: 20110606
  Transmission Date: 20111010
  Serious: Yes (Death)
  Sender: FDA-Public Use
  Company Number: ES-CELGENEUS-144-50794-11060691

PATIENT
  Age: 68 Year
  Sex: Female

DRUGS (3)
  1. TRANSFUSIONS [Concomitant]
     Route: 051
     Dates: start: 20101201, end: 20110201
  2. VIDAZA [Suspect]
     Dosage: 140 MILLIGRAM
     Route: 050
     Dates: start: 20101201, end: 20110201
  3. ERYTHROPOETIN [Concomitant]
     Route: 065
     Dates: start: 20101201, end: 20110101

REACTIONS (1)
  - DISEASE PROGRESSION [None]
